FAERS Safety Report 24035626 (Version 1)
Quarter: 2024Q3

REPORT INFORMATION
  Report Type: Report from Study
  Country: US (occurrence: US)
  Receive Date: 20240701
  Receipt Date: 20240701
  Transmission Date: 20241017
  Serious: Yes (Other)
  Sender: OTSUKA
  Company Number: US-OTSUKA-2024_006221

PATIENT
  Sex: Female

DRUGS (3)
  1. TOLVAPTAN [Suspect]
     Active Substance: TOLVAPTAN
     Indication: Congenital cystic kidney disease
     Dosage: UNK
     Route: 065
     Dates: start: 20240301
  2. TOLVAPTAN [Suspect]
     Active Substance: TOLVAPTAN
     Dosage: UNK
     Route: 065
     Dates: start: 20240218
  3. TOLVAPTAN [Suspect]
     Active Substance: TOLVAPTAN
     Dosage: UNK (LOWERED DOSE)
     Route: 065

REACTIONS (3)
  - Renal impairment [Unknown]
  - Pruritus [Recovered/Resolved]
  - Liver function test increased [Unknown]

NARRATIVE: CASE EVENT DATE: 20240301
